FAERS Safety Report 16379530 (Version 2)
Quarter: 2019Q2

REPORT INFORMATION
  Report Type: Report from Study
  Country: US (occurrence: US)
  Receive Date: 20190531
  Receipt Date: 20190607
  Transmission Date: 20190711
  Serious: Yes (Hospitalization)
  Sender: FDA-Public Use
  Company Number: PHEH2019US022480

PATIENT
  Sex: Male
  Weight: 97.51 kg

DRUGS (2)
  1. COSENTYX [Suspect]
     Active Substance: SECUKINUMAB
     Indication: PSORIASIS
     Dosage: 300 MG, QMO
     Route: 065
     Dates: start: 20171128
  2. HYDROCORTISON [Concomitant]
     Active Substance: HYDROCORTISONE
     Indication: PSORIASIS
     Dosage: UNK UNK, QD
     Route: 065

REACTIONS (8)
  - Hepatic enzyme increased [Recovering/Resolving]
  - Bile duct stone [Recovered/Resolved]
  - Vomiting [Unknown]
  - Influenza [Unknown]
  - Cholelithiasis [Recovered/Resolved]
  - Leukocytosis [Unknown]
  - Abdominal pain [Unknown]
  - Ear infection [Unknown]

NARRATIVE: CASE EVENT DATE: 2018
